FAERS Safety Report 6898941-9 (Version None)
Quarter: 2010Q3

REPORT INFORMATION
  Report Type: 
  Country: None (occurrence: None)
  Receive Date: 20100802
  Receipt Date: 20071215
  Transmission Date: 20110219
  Serious: No
  Sender: FDA-Public Use
  Company Number: US-PFIZER INC-2007105157

PATIENT

DRUGS (2)
  1. LYRICA [Suspect]
     Indication: DIABETIC NEUROPATHY
  2. OTHER NERVOUS SYSTEM DRUGS [Concomitant]
     Indication: MENTAL DISORDER

REACTIONS (1)
  - STOMATITIS [None]
